FAERS Safety Report 5112492-3 (Version None)
Quarter: 2006Q3

REPORT INFORMATION
  Report Type: 
  Country: None (occurrence: None)
  Receive Date: 20060731
  Receipt Date: 20060614
  Transmission Date: 20061208
  Serious: No
  Sender: FDA-Public Use
  Company Number: 2006PV015615

PATIENT
  Age: 55 Year
  Sex: Female

DRUGS (14)
  1. BYETTA [Suspect]
     Indication: DIABETES MELLITUS NON-INSULIN-DEPENDENT
     Dosage: 5 MCG; BID;SC
     Route: 058
     Dates: start: 20060608, end: 20060614
  2. GLUCOPHAGE [Concomitant]
  3. COZAAR [Concomitant]
  4. LIPITOR [Concomitant]
  5. LOPRESSOR [Concomitant]
  6. PREVACID [Concomitant]
  7. FLUVOXAMINE MALEATE [Concomitant]
  8. WELLBUTRIN [Concomitant]
  9. CLONAZEPAM [Concomitant]
  10. LYRICA [Concomitant]
  11. TRAVATAN [Concomitant]
  12. FLONASE [Concomitant]
  13. ADVAIR DISKUS 100/50 [Concomitant]
  14. ALBUTEROL [Concomitant]

REACTIONS (5)
  - BLOOD GLUCOSE DECREASED [None]
  - DIARRHOEA [None]
  - FEELING COLD [None]
  - NAUSEA [None]
  - VOMITING [None]
